FAERS Safety Report 9338353 (Version 2)
Quarter: 2013Q3

REPORT INFORMATION
  Report Type: Spontaneous
  Country: US (occurrence: US)
  Receive Date: 20130610
  Receipt Date: 20130718
  Transmission Date: 20140515
  Serious: Yes (Other)
  Sender: FDA-Public Use
  Company Number: US-PFIZER INC-2013174249

PATIENT
  Age: 6 Year
  Sex: Male

DRUGS (1)
  1. QUILLIVANT XR [Suspect]
     Indication: ATTENTION DEFICIT/HYPERACTIVITY DISORDER
     Dosage: 5 ML, 2X/DAY
     Route: 048
     Dates: start: 20130215

REACTIONS (4)
  - Visual impairment [Not Recovered/Not Resolved]
  - Anisometropia [Not Recovered/Not Resolved]
  - Amblyopia [Not Recovered/Not Resolved]
  - Strabismus [Not Recovered/Not Resolved]
